FAERS Safety Report 7392681-8 (Version None)
Quarter: 2011Q1

REPORT INFORMATION
  Report Type: 
  Country: None (occurrence: None)
  Receive Date: 20110330
  Receipt Date: 20110330
  Transmission Date: 20110831
  Serious: No
  Sender: FDA-Public Use
  Company Number: None

PATIENT
  Age: 68 Year
  Sex: Male
  Weight: 82.5547 kg

DRUGS (2)
  1. CARBOPLATIN [Suspect]
     Indication: SMALL CELL CARCINOMA
     Dosage: 3 DAYS ON; 21 OFF IV DRIP
     Route: 041
     Dates: start: 20100705, end: 20101028
  2. ETOPOSIDE [Suspect]
     Indication: SMALL CELL CARCINOMA
     Dosage: 3 DAYS ON, 21 OFF IV DRIP
     Route: 041

REACTIONS (3)
  - VISUAL FIELD DEFECT [None]
  - VISION BLURRED [None]
  - PHOTOPHOBIA [None]
